FAERS Safety Report 22111528 (Version 1)
Quarter: 2023Q1

REPORT INFORMATION
  Report Type: Spontaneous
  Country: FR (occurrence: FR)
  Receive Date: 20230318
  Receipt Date: 20230318
  Transmission Date: 20230417
  Serious: Yes (Hospitalization)
  Sender: FDA-Public Use
  Company Number: FR-AFSSAPS-PV2023000202

PATIENT
  Age: 13 Year
  Sex: Female
  Weight: 50 kg

DRUGS (4)
  1. AMOXICILLIN [Suspect]
     Active Substance: AMOXICILLIN
     Indication: Intentional overdose
     Dosage: UNK
     Route: 048
     Dates: start: 20211016, end: 20211016
  2. PRAZEPAM [Suspect]
     Active Substance: PRAZEPAM
     Indication: Intentional overdose
     Dosage: UNK
     Route: 048
     Dates: start: 20211016, end: 20211016
  3. DAFALGAN [Suspect]
     Active Substance: ACETAMINOPHEN
     Indication: Intentional overdose
     Dosage: UNK
     Route: 048
     Dates: start: 20211016, end: 20211016
  4. KETOPROFEN [Suspect]
     Active Substance: KETOPROFEN
     Indication: Intentional overdose
     Dosage: UNK
     Route: 048
     Dates: start: 20211016, end: 20211016

REACTIONS (2)
  - Intentional overdose [Recovered/Resolved]
  - Somnolence [Unknown]

NARRATIVE: CASE EVENT DATE: 20211016
